FAERS Safety Report 21435732 (Version 1)
Quarter: 2022Q4

REPORT INFORMATION
  Report Type: Spontaneous
  Country: CH (occurrence: CH)
  Receive Date: 20221010
  Receipt Date: 20221010
  Transmission Date: 20230112
  Serious: Yes (Disabling, Other)
  Sender: FDA-Public Use
  Company Number: CH-GUERBET-CH-20220029

PATIENT
  Age: 41 Year
  Sex: Female
  Weight: 93 kg

DRUGS (1)
  1. DOTAREM [Suspect]
     Active Substance: GADOTERATE MEGLUMINE
     Indication: Magnetic resonance imaging
     Route: 042
     Dates: start: 20220531, end: 20220531

REACTIONS (16)
  - Facial paresis [Recovering/Resolving]
  - Facial pain [Recovering/Resolving]
  - Visual impairment [Recovering/Resolving]
  - Blepharospasm [Recovering/Resolving]
  - Pain [Recovering/Resolving]
  - Muscular weakness [Recovering/Resolving]
  - Dysgeusia [Recovering/Resolving]
  - Cardiovascular disorder [Recovered/Resolved]
  - Dizziness [Recovering/Resolving]
  - Paraesthesia oral [Recovered/Resolved]
  - Hypoaesthesia [Recovering/Resolving]
  - Anxiety [Recovering/Resolving]
  - Eye swelling [Recovering/Resolving]
  - Eye pruritus [Recovering/Resolving]
  - Hypoaesthesia [Recovering/Resolving]
  - Asthenia [Recovering/Resolving]

NARRATIVE: CASE EVENT DATE: 20220531
